FAERS Safety Report 7457101-3 (Version None)
Quarter: 2011Q2

REPORT INFORMATION
  Report Type: 
  Country: None (occurrence: None)
  Receive Date: 20110504
  Receipt Date: 20110420
  Transmission Date: 20111010
  Serious: Yes (Other)
  Sender: FDA-Public Use
  Company Number: GB-RANBAXY-2011R1-43965

PATIENT
  Age: 27 Year
  Sex: Female

DRUGS (9)
  1. LAMOTRIGINE [Suspect]
     Indication: CONVULSION
     Dosage: 200 MG, UNK
     Route: 065
  2. TIAGABINE HCL [Suspect]
     Indication: CONVULSION
     Dosage: UNK
     Route: 065
  3. ZONISAMIDE [Suspect]
     Indication: CONVULSION
     Dosage: 100 MG, UNK,2/1DAY
     Route: 065
  4. ZONISAMIDE [Suspect]
     Dosage: UNK
     Route: 065
  5. CARBAMAZEPINE [Suspect]
     Indication: CONVULSION
     Dosage: UNK
     Route: 065
  6. TOPIRAMATE [Suspect]
     Indication: CONVULSION
     Dosage: UNK
     Route: 048
  7. LAMOTRIGINE [Suspect]
     Dosage: UNK
     Route: 065
  8. LEVETIRACETAM [Suspect]
     Indication: CONVULSION
     Dosage: UNK
     Route: 065
  9. PHENYTOIN [Suspect]
     Indication: CONVULSION
     Dosage: UNK
     Route: 065

REACTIONS (1)
  - DRUG INEFFECTIVE [None]
